FAERS Safety Report 11165457 (Version 2)
Quarter: 2015Q2

REPORT INFORMATION
  Report Type: Spontaneous
  Country: US (occurrence: US)
  Receive Date: 20150604
  Receipt Date: 20150625
  Transmission Date: 20150821
  Serious: Yes (Death)
  Sender: FDA-Public Use
  Company Number: US-PFIZER INC-2015186279

PATIENT
  Age: 81 Year
  Sex: Male

DRUGS (1)
  1. FRAGMIN [Suspect]
     Active Substance: DALTEPARIN SODIUM
     Indication: PULMONARY THROMBOSIS
     Dosage: UNK UNK, 1X/DAY
     Dates: start: 20150423, end: 20150512

REACTIONS (1)
  - Death [Fatal]

NARRATIVE: CASE EVENT DATE: 20150513
